FAERS Safety Report 9618171 (Version 2)
Quarter: 2014Q1

REPORT INFORMATION
  Report Type: Report from Study
  Country: CA (occurrence: CA)
  Receive Date: 20131014
  Receipt Date: 20140220
  Transmission Date: 20141002
  Serious: Yes (Hospitalization)
  Sender: FDA-Public Use
  Company Number: CA-ROCHE-1288181

PATIENT
  Age: 69 Year
  Sex: Male
  Weight: 80 kg

DRUGS (15)
  1. RANIBIZUMAB [Suspect]
     Indication: AGE-RELATED MACULAR DEGENERATION
     Dosage: THE LAST DOSE WAS RECEIVED ON 26/FEB/2013.
     Route: 050
     Dates: start: 20120301
  2. AMLODIPINE [Concomitant]
     Route: 065
     Dates: start: 1994
  3. AMLODIPINE [Concomitant]
     Route: 065
     Dates: start: 20130227
  4. FLOVENT [Concomitant]
     Route: 065
     Dates: start: 1952
  5. FLOVENT [Concomitant]
     Route: 065
     Dates: start: 20130227
  6. RAMIPRIL [Concomitant]
     Route: 065
     Dates: start: 1994
  7. RAMIPRIL [Concomitant]
     Route: 065
     Dates: start: 20130227
  8. METFORMIN [Concomitant]
     Route: 065
     Dates: start: 1999
  9. METFORMIN [Concomitant]
     Route: 065
     Dates: start: 20130227
  10. GLIBENCLAMIDE [Concomitant]
     Route: 065
     Dates: start: 1999
  11. GLIBENCLAMIDE [Concomitant]
     Route: 065
     Dates: start: 20130227
  12. SALVENT [Concomitant]
     Route: 065
     Dates: start: 1952
  13. SALVENT [Concomitant]
     Route: 065
     Dates: start: 20130227
  14. CIALIS [Concomitant]
     Route: 065
     Dates: start: 1994
  15. CIALIS [Concomitant]
     Route: 065
     Dates: start: 20130227

REACTIONS (1)
  - Lung neoplasm malignant [Recovered/Resolved]
